FAERS Safety Report 8420102-2 (Version None)
Quarter: 2012Q2

REPORT INFORMATION
  Report Type: 
  Country: None (occurrence: None)
  Receive Date: 20120607
  Receipt Date: 20120607
  Transmission Date: 20120825
  Serious: Yes (Other)
  Sender: FDA-Public Use
  Company Number: BE-ABBOTT-12P-013-0943290-00

PATIENT

DRUGS (2)
  1. HUMIRA [Suspect]
     Indication: POLYARTHRITIS
  2. HUMIRA [Suspect]
     Indication: PSORIASIS

REACTIONS (1)
  - NEOPLASM MALIGNANT [None]
